FAERS Safety Report 8246715-9 (Version None)
Quarter: 2012Q1

REPORT INFORMATION
  Report Type: 
  Country: None (occurrence: None)
  Receive Date: 20120319
  Receipt Date: 20120309
  Transmission Date: 20120608
  Serious: Yes (Hospitalization)
  Sender: FDA-Public Use
  Company Number: 2012031564

PATIENT
  Age: 76 Year
  Sex: Female

DRUGS (13)
  1. RAMIPRIL [Concomitant]
  2. LOPERAMID (LOPERAMIDE HYDROCHLORIDE) [Concomitant]
  3. KREON (PANCREATIN) [Concomitant]
  4. PEPSIN-WEIN (PEPSIN-WEIN) [Concomitant]
  5. COTRIN (BACRRIM /00086101/) [Concomitant]
  6. NOVALGIN /00039501/ (METAMIZOLE SODIUM) [Concomitant]
  7. ACYCLOVIR [Concomitant]
  8. PANTOPRAZOLE SODIUM [Concomitant]
  9. FENTANYL [Concomitant]
  10. GABAPENTIN [Concomitant]
  11. PRIVIGEN [Suspect]
     Indication: CHRONIC LYMPHOCYTIC LEUKAEMIA
     Dosage: SEE IMAGE
     Route: 042
     Dates: start: 20111220
  12. AMITRIPTYLINE HCL [Concomitant]
  13. TAMSULOSIN HCL [Concomitant]

REACTIONS (13)
  - DIARRHOEA [None]
  - ANXIETY DISORDER DUE TO A GENERAL MEDICAL CONDITION [None]
  - GENERAL PHYSICAL HEALTH DETERIORATION [None]
  - ORTHOSTATIC INTOLERANCE [None]
  - DECREASED APPETITE [None]
  - LYMPHADENOPATHY [None]
  - BLOOD PRESSURE DECREASED [None]
  - ABNORMAL FAECES [None]
  - HERPES ZOSTER [None]
  - NEURALGIA [None]
  - DIZZINESS [None]
  - NAUSEA [None]
  - ESCHERICHIA URINARY TRACT INFECTION [None]
